FAERS Safety Report 9380951 (Version 1)
Quarter: 2013Q3

REPORT INFORMATION
  Report Type: Spontaneous
  Country: AU (occurrence: AU)
  Receive Date: 20130703
  Receipt Date: 20130703
  Transmission Date: 20140515
  Serious: Yes (Other)
  Sender: FDA-Public Use
  Company Number: AU-ROCHE-1242590

PATIENT
  Sex: Female

DRUGS (4)
  1. OMALIZUMAB [Suspect]
     Indication: PRODUCT USED FOR UNKNOWN INDICATION
     Route: 065
  2. PREDNISOLONE [Concomitant]
  3. SALBUTAMOL [Concomitant]
  4. SYMBICORT [Concomitant]

REACTIONS (5)
  - Haemorrhage [Unknown]
  - Contusion [Unknown]
  - Alopecia [Unknown]
  - Arthralgia [Unknown]
  - Weight increased [Unknown]
